FAERS Safety Report 9832503 (Version 2)
Quarter: 2014Q2

REPORT INFORMATION
  Report Type: Spontaneous
  Country: US (occurrence: US)
  Receive Date: 20140121
  Receipt Date: 20140407
  Transmission Date: 20141212
  Serious: Yes (Hospitalization, Other)
  Sender: FDA-Public Use
  Company Number: US-GILEAD-2014-0092637

PATIENT
  Sex: Male

DRUGS (2)
  1. LETAIRIS [Suspect]
     Indication: PULMONARY ARTERIAL HYPERTENSION
     Dosage: 10 MG, UNK
     Route: 048
     Dates: start: 20111122
  2. LETAIRIS [Suspect]
     Indication: RESPIRATORY FUME INHALATION DISORDER

REACTIONS (3)
  - Cardiac disorder [Unknown]
  - Gallbladder disorder [Unknown]
  - Pulmonary arterial hypertension [Unknown]
